FAERS Safety Report 8528301 (Version 2)
Quarter: 2012Q4

REPORT INFORMATION
  Report Type: 
  Country: US (occurrence: US)
  Receive Date: 20120424
  Receipt Date: 20120910
  Transmission Date: 20130627
  Serious: Yes (Other)
  Sender: FDA-Public Use
  Company Number: US-US-EMD SERONO, INC.-7127090

PATIENT
  Sex: Female

DRUGS (3)
  1. REBIF [Suspect]
     Indication: MULTIPLE SCLEROSIS
     Route: 058
     Dates: start: 20120322, end: 201206
  2. REBIF [Suspect]
     Route: 058
     Dates: start: 201208
  3. ALEVE [Concomitant]
     Indication: PREMEDICATION

REACTIONS (2)
  - Epistaxis [Recovered/Resolved]
  - Injection site erythema [Unknown]
